FAERS Safety Report 17219566 (Version 2)
Quarter: 2020Q1

REPORT INFORMATION
  Report Type: Spontaneous
  Country: JP (occurrence: JP)
  Receive Date: 20191231
  Receipt Date: 20200119
  Transmission Date: 20200409
  Serious: Yes (Other)
  Sender: FDA-Public Use
  Company Number: JP-NOVOPROD-704185

PATIENT
  Age: 70 Year
  Sex: Male

DRUGS (3)
  1. NOVORAPID [Suspect]
     Active Substance: INSULIN ASPART
     Indication: DIABETES MELLITUS
     Dosage: 14 IU, QD
     Route: 058
  2. LEVEMIR [Suspect]
     Active Substance: INSULIN DETEMIR
     Indication: DIABETES MELLITUS
     Dosage: 14 IU, QD
     Route: 058
  3. VOGLIBOSE [Suspect]
     Active Substance: VOGLIBOSE
     Indication: PRODUCT USED FOR UNKNOWN INDICATION
     Dosage: 1.8 MG, QD
     Route: 048

REACTIONS (4)
  - Hepatic cyst [Unknown]
  - Cardiac failure [Unknown]
  - Chronic gastritis [Unknown]
  - Renal cyst [Unknown]
